FAERS Safety Report 8371619-0 (Version None)
Quarter: 2012Q2

REPORT INFORMATION
  Report Type: 
  Country: None (occurrence: None)
  Receive Date: 20120518
  Receipt Date: 20120514
  Transmission Date: 20120825
  Serious: No
  Sender: FDA-Public Use
  Company Number: US-ASTRAZENECA-2012SE22680

PATIENT
  Age: 81 Year
  Sex: Female
  Weight: 63.5 kg

DRUGS (2)
  1. AEROSOL TREATMENT [Concomitant]
     Indication: BRONCHIECTASIS
     Dosage: QID
     Route: 055
     Dates: start: 19950101
  2. SYMBICORT [Suspect]
     Indication: BRONCHIECTASIS
     Dosage: 160/4.5 MCG , 2 PUFFS BID
     Route: 055
     Dates: start: 20100101

REACTIONS (4)
  - VISUAL ACUITY REDUCED [None]
  - OFF LABEL USE [None]
  - COUGH [None]
  - CIRCUMSTANCE OR INFORMATION CAPABLE OF LEADING TO MEDICATION ERROR [None]
